FAERS Safety Report 6664747-9 (Version None)
Quarter: 2010Q1

REPORT INFORMATION
  Report Type: 
  Country: None (occurrence: None)
  Receive Date: 20100330
  Receipt Date: 20100315
  Transmission Date: 20100710
  Serious: Yes (Hospitalization)
  Sender: FDA-Public Use
  Company Number: 2010000880

PATIENT
  Age: 57 Year
  Sex: Male

DRUGS (3)
  1. ERLOTINIB HYDROCHLORIDE [Suspect]
     Indication: PANCREATIC CARCINOMA
     Dosage: (QD), ORAL
     Route: 048
     Dates: start: 20091127, end: 20100312
  2. TRAMADOL HCL [Concomitant]
  3. KREON (PANCREATIN) [Concomitant]

REACTIONS (6)
  - BILIRUBIN CONJUGATED INCREASED [None]
  - BLOOD BILIRUBIN INCREASED [None]
  - CHOLANGITIS ACUTE [None]
  - HYPERPYREXIA [None]
  - JAUNDICE [None]
  - PRURITUS [None]
